FAERS Safety Report 6242091-1 (Version None)
Quarter: 2009Q2

REPORT INFORMATION
  Report Type: 
  Country: None (occurrence: None)
  Receive Date: 20090623
  Receipt Date: 20090611
  Transmission Date: 20091009
  Serious: Yes (Other)
  Sender: FDA-Public Use
  Company Number: JP-PFIZER INC-2009214372

PATIENT
  Age: 21 Year

DRUGS (3)
  1. DEPO-MEDROL [Suspect]
     Indication: SCAR
     Dosage: 40 MG, 1X/DAY
     Route: 061
     Dates: start: 20090428, end: 20090428
  2. DEPO-MEDROL [Suspect]
     Dosage: 20 MG, 1X/DAY
     Route: 061
     Dates: start: 20090402, end: 20090402
  3. XYLOCAIN-ADRENALIN [Concomitant]
     Indication: PAIN
     Dates: start: 20090428, end: 20090428

REACTIONS (2)
  - PRODUCT FORMULATION ISSUE [None]
  - SKIN NECROSIS [None]
